FAERS Safety Report 8531462 (Version 3)
Quarter: 2012Q4

REPORT INFORMATION
  Report Type: Report from Study
  Country: FR (occurrence: FR)
  Receive Date: 20120426
  Receipt Date: 20121029
  Transmission Date: 20130627
  Serious: Yes (Death, Life-Threatening, Hospitalization, Other)
  Sender: FDA-Public Use
  Company Number: FR-GENZYME-CLOF-1002125

PATIENT
  Age: 60 Year
  Sex: Male
  Weight: 93 kg

DRUGS (13)
  1. EVOLTRA [Suspect]
     Indication: ACUTE LYMPHOCYTIC LEUKAEMIA
     Dosage: 60 mg, UNK
     Route: 042
     Dates: start: 20120314, end: 20120318
  2. PREDNISOLONE [Suspect]
     Indication: ACUTE LYMPHOCYTIC LEUKAEMIA
     Dosage: 120 mg, UNK
     Route: 048
     Dates: start: 20120314, end: 20120320
  3. PREDNISOLONE [Suspect]
     Dosage: 20 mg, UNK
     Route: 037
     Dates: start: 20120320, end: 20120320
  4. PREDNISOLONE [Suspect]
     Indication: ACUTE LYMPHOCYTIC LEUKAEMIA
     Dosage: 20 mg, UNK
     Route: 037
     Dates: start: 20120320, end: 20120320
  5. PREDNISOLONE [Suspect]
     Dosage: 80 mg, UNK
     Route: 048
     Dates: start: 20120321, end: 20120401
  6. VINCRISTINE [Suspect]
     Indication: ACUTE LYMPHOCYTIC LEUKAEMIA
     Dosage: 1 mg, UNK
     Route: 042
     Dates: start: 20120321, end: 20120328
  7. ADRIAMYCIN [Suspect]
     Indication: ACUTE LYMPHOCYTIC LEUKAEMIA
     Dosage: 80 mg, UNK
     Route: 042
     Dates: start: 20120328, end: 20120328
  8. METHOTREXATE [Suspect]
     Indication: ACUTE LYMPHOCYTIC LEUKAEMIA
     Dosage: 15 mg, UNK
     Route: 037
     Dates: start: 20120320, end: 20120320
  9. METHOTREXATE [Suspect]
     Dosage: 15 mg, UNK
     Route: 037
     Dates: start: 20120327, end: 20120327
  10. CLAFORAN [Concomitant]
     Indication: PYREXIA
     Dosage: 3 g, UNK
     Route: 042
     Dates: start: 20120313, end: 20120331
  11. BACTRIM [Concomitant]
     Indication: ANTIBIOTIC PROPHYLAXIS
     Dosage: 800 mg, 3x/w
     Route: 048
     Dates: start: 20120320, end: 20120331
  12. ZELITREX [Concomitant]
     Indication: ANTIVIRAL PROPHYLAXIS
     Dosage: 1000 mg, UNK
     Route: 048
     Dates: start: 20120320, end: 20120402
  13. NOXAFIL [Concomitant]
     Indication: ANTIFUNGAL PROPHYLAXIS
     Dosage: 600 mg, UNK
     Route: 048
     Dates: start: 20120320, end: 20120331

REACTIONS (5)
  - Multi-organ failure [Fatal]
  - Neutropenic infection [Fatal]
  - Neutropenia [Recovered/Resolved]
  - Convulsion [Recovered/Resolved]
  - Cardiac arrest [Recovered/Resolved]
